FAERS Safety Report 13656469 (Version 1)
Quarter: 2017Q2

REPORT INFORMATION
  Report Type: Spontaneous
  Country: FR (occurrence: FR)
  Receive Date: 20170615
  Receipt Date: 20170615
  Transmission Date: 20170830
  Serious: Yes (Hospitalization, Other)
  Sender: FDA-Public Use
  Company Number: FR-PFIZER INC-2017256099

PATIENT
  Age: 20 Year
  Sex: Female

DRUGS (4)
  1. HYDROCORTISONE. [Suspect]
     Active Substance: HYDROCORTISONE
     Indication: STATUS ASTHMATICUS
     Dosage: 6000 MG, UNK (6000 MG IN TOTAL)
  2. PAVULON [Suspect]
     Active Substance: PANCURONIUM BROMIDE
     Indication: STATUS ASTHMATICUS
     Dosage: UNK (50 MG/H)
  3. PAVULON [Suspect]
     Active Substance: PANCURONIUM BROMIDE
     Indication: NEUROMUSCULAR BLOCKING THERAPY
  4. NORCURON [Suspect]
     Active Substance: VECURONIUM BROMIDE
     Indication: STATUS ASTHMATICUS
     Dosage: UNK (50 MG/KG/HR)

REACTIONS (2)
  - Rhabdomyolysis [Recovered/Resolved]
  - Myopathy [Recovered/Resolved]
